FAERS Safety Report 6589229-4 (Version None)
Quarter: 2010Q1

REPORT INFORMATION
  Report Type: 
  Country: None (occurrence: None)
  Receive Date: 20100218
  Receipt Date: 20100208
  Transmission Date: 20100710
  Serious: Yes (Other)
  Sender: FDA-Public Use
  Company Number: AU-ABBOTT-10P-008-0624874-00

PATIENT
  Age: 33 Year
  Sex: Male

DRUGS (3)
  1. REDUCTIL [Suspect]
     Indication: DRUG USE FOR UNKNOWN INDICATION
     Dates: start: 20090327, end: 20090403
  2. REDUCTIL [Suspect]
     Dates: start: 20090502
  3. REDUCTIL [Suspect]
     Dates: start: 20090701

REACTIONS (3)
  - ABDOMINAL MASS [None]
  - ABDOMINAL PAIN [None]
  - VOMITING [None]
